APPROVED DRUG PRODUCT: EPIOXA HD/EPIOXA KIT
Active Ingredient: RIBOFLAVIN 5'-PHOSPHATE SODIUM
Strength: EQ 0.239% BASE/ML;EQ 0.177% BASE/ML
Dosage Form/Route: SOLUTION/DROPS;OPHTHALMIC
Application: N219910 | Product #001
Applicant: GLAUKOS CORP
Approved: Oct 17, 2025 | RLD: Yes | RS: Yes | Type: RX

EXCLUSIVITY:
Code: NP | Date: Oct 17, 2028